FAERS Safety Report 26169168 (Version 1)
Quarter: 2025Q4

REPORT INFORMATION
  Report Type: Spontaneous
  Country: US (occurrence: None)
  Receive Date: 20251217
  Receipt Date: 20251217
  Transmission Date: 20260117
  Serious: Yes (Hospitalization)
  Sender: FDA-CTU
  Company Number: None

PATIENT
  Age: 85 Year
  Sex: Male

DRUGS (2)
  1. ACETAMINOPHEN [Suspect]
     Active Substance: ACETAMINOPHEN
  2. QUETIAPINE [Suspect]
     Active Substance: QUETIAPINE

REACTIONS (6)
  - Accidental overdose [None]
  - Agitation [None]
  - Delusion [None]
  - Malaise [None]
  - Dementia [None]
  - Liver function test increased [None]

NARRATIVE: CASE EVENT DATE: 20250227
